FAERS Safety Report 8893936 (Version 1)
Quarter: 2012Q4

REPORT INFORMATION
  Report Type: 
  Country: CA (occurrence: CA)
  Receive Date: 20121107
  Receipt Date: 20121107
  Transmission Date: 20130627
  Serious: Yes (Death, Hospitalization, Other)
  Sender: FDA-Public Use
  Company Number: PHMT2005CA00635

PATIENT
  Age: 75 Year
  Sex: Male

DRUGS (4)
  1. SANDOSTATIN LAR [Suspect]
     Indication: DIARRHOEA
     Dates: start: 20051025, end: 20051025
  2. CELEBREX [Concomitant]
  3. LISINOPRIL [Concomitant]
  4. OMEPRAZOLE [Concomitant]

REACTIONS (7)
  - Intestinal obstruction [Fatal]
  - Pain [Unknown]
  - Dehydration [Unknown]
  - Abdominal pain [Unknown]
  - Diarrhoea [Unknown]
  - Vomiting [Unknown]
  - Flatulence [Unknown]
